FAERS Safety Report 7111386-1 (Version None)
Quarter: 2010Q4

REPORT INFORMATION
  Report Type: 
  Country: None (occurrence: None)
  Receive Date: 20101118
  Receipt Date: 20091216
  Transmission Date: 20110411
  Serious: No
  Sender: FDA-Public Use
  Company Number: US-TEVA-218373USA

PATIENT
  Age: 76 Year
  Sex: Male
  Weight: 118.49 kg

DRUGS (1)
  1. ALBUTEROL SULFATE AUTOHALER [Suspect]
     Dosage: 2 PUFFS Q 4-6 HRS
     Route: 055
     Dates: start: 20090701

REACTIONS (2)
  - DRUG EFFECT DECREASED [None]
  - WHEEZING [None]
